FAERS Safety Report 17802630 (Version 1)
Quarter: 2020Q2

REPORT INFORMATION
  Report Type: Spontaneous
  Country: NL (occurrence: NL)
  Receive Date: 20200519
  Receipt Date: 20200519
  Transmission Date: 20200714
  Serious: Yes (Other)
  Sender: FDA-Public Use
  Company Number: None

PATIENT
  Age: 39 Year
  Sex: Female
  Weight: 70 kg

DRUGS (15)
  1. OMEPRAZOLE. [Concomitant]
     Active Substance: OMEPRAZOLE
  2. OXYCODONE [Concomitant]
     Active Substance: OXYCODONE
  3. Q10 [Concomitant]
     Active Substance: UBIDECARENONE
  4. MAGNESIUM CITRATE. [Concomitant]
     Active Substance: MAGNESIUM CITRATE
  5. VITAMIN B12 [Concomitant]
     Active Substance: CYANOCOBALAMIN
  6. MULTIVITAMIN [Concomitant]
     Active Substance: VITAMINS
  7. OMEGA 3+6 [Concomitant]
  8. DUSPATAL [Concomitant]
     Active Substance: MEBEVERINE
  9. METOPROLOL. [Concomitant]
     Active Substance: METOPROLOL
  10. CLOVATE [Concomitant]
  11. LAMOTRIGINE. [Concomitant]
     Active Substance: LAMOTRIGINE
  12. MESALAMINE. [Concomitant]
     Active Substance: MESALAMINE
  13. BECLOMETHASONE NASAL SPRAY [Concomitant]
  14. DUSPATAL (MEBEVERINE HYDROCHLORIDE [Suspect]
     Active Substance: MEBEVERINE HYDROCHLORIDE
     Indication: IRRITABLE BOWEL SYNDROME
     Dosage: ?          QUANTITY:1 CAPSULE(S);?
     Route: 048
     Dates: start: 20200511, end: 20200518
  15. PEA. [Concomitant]
     Active Substance: PEA

REACTIONS (2)
  - Toxic neuropathy [None]
  - Product substitution issue [None]

NARRATIVE: CASE EVENT DATE: 20200515
